FAERS Safety Report 13612183 (Version 6)
Quarter: 2017Q3

REPORT INFORMATION
  Report Type: Spontaneous
  Country: KR (occurrence: KR)
  Receive Date: 20170605
  Receipt Date: 20170825
  Transmission Date: 20171127
  Serious: Yes (Hospitalization, Other)
  Sender: FDA-Public Use
  Company Number: KR-009507513-1706KOR000751

PATIENT
  Age: 69 Year
  Sex: Male
  Weight: 53.6 kg

DRUGS (49)
  1. CISPLATIN. [Concomitant]
     Active Substance: CISPLATIN
     Dosage: 93 MG, ONCE
     Route: 042
     Dates: start: 20170331, end: 20170331
  2. DEXAMETHASONE SODIUM PHOSPHATE. [Concomitant]
     Active Substance: DEXAMETHASONE SODIUM PHOSPHATE
     Indication: PROPHYLAXIS OF NAUSEA AND VOMITING
     Dosage: 12 MG, ONCE
     Route: 042
     Dates: start: 20170224, end: 20170224
  3. MACPERAN [Concomitant]
     Active Substance: METOCLOPRAMIDE HYDROCHLORIDE
     Indication: VOMITING
     Dosage: 10 MG, TID
     Route: 042
     Dates: start: 20170217, end: 20170223
  4. LIPITOR [Concomitant]
     Active Substance: ATORVASTATIN CALCIUM
     Indication: HYPERLIPIDAEMIA
     Dosage: 10 MG, QD
     Route: 048
     Dates: start: 1997
  5. GALVUS [Concomitant]
     Active Substance: VILDAGLIPTIN
     Indication: DIABETES MELLITUS
     Dosage: 50 MG, BID
     Route: 048
     Dates: start: 20170308
  6. MOTILITONE [Concomitant]
     Active Substance: HERBALS
     Indication: PROPHYLAXIS
     Dosage: 30 MG, TID
     Route: 048
     Dates: start: 20170415
  7. MACPERAN [Concomitant]
     Active Substance: METOCLOPRAMIDE HYDROCHLORIDE
     Indication: GASTROINTESTINAL MOTILITY DISORDER
     Dosage: 10 MG, TID
     Route: 042
     Dates: start: 20170328, end: 20170403
  8. APETROL (MEGESTROL ACETATE) [Concomitant]
     Indication: DECREASED APPETITE
     Dosage: 5.2 ML, QD
     Route: 048
     Dates: start: 20170222
  9. CHLORPHENIRAMINE MALEATE. [Concomitant]
     Active Substance: CHLORPHENIRAMINE MALEATE
     Dosage: 4 MG, ONCE
     Route: 042
     Dates: start: 20170331, end: 20170331
  10. GLUPA [Concomitant]
     Active Substance: METFORMIN HYDROCHLORIDE
     Indication: DIABETES MELLITUS
     Dosage: 850 MG, TID
     Route: 048
     Dates: start: 20170308
  11. HERCEPTIN [Concomitant]
     Active Substance: TRASTUZUMAB
     Dosage: 300 MG, ONCE
     Route: 042
     Dates: start: 20170331, end: 20170331
  12. CISPLATIN. [Concomitant]
     Active Substance: CISPLATIN
     Dosage: 88 MG, ONCE
     Route: 042
     Dates: start: 20170426, end: 20170426
  13. CHLORPHENIRAMINE MALEATE. [Concomitant]
     Active Substance: CHLORPHENIRAMINE MALEATE
     Indication: ALLERGY PROPHYLAXIS
     Dosage: 4 MG, ONCE
     Route: 042
     Dates: start: 20170224, end: 20170224
  14. CURAN [Concomitant]
     Active Substance: RANITIDINE HYDROCHLORIDE
     Dosage: 50 MG, QD
     Route: 042
     Dates: start: 20170331, end: 20170404
  15. DEXAMETHASONE SODIUM PHOSPHATE. [Concomitant]
     Active Substance: DEXAMETHASONE SODIUM PHOSPHATE
     Dosage: 10 MG, QD
     Route: 042
     Dates: start: 20170401, end: 20170404
  16. SANCUSO [Concomitant]
     Active Substance: GRANISETRON
     Indication: PROPHYLAXIS OF NAUSEA AND VOMITING
     Dosage: 1 DF, QD
     Route: 062
     Dates: start: 20170223, end: 20170301
  17. TYLENOL [Concomitant]
     Active Substance: ACETAMINOPHEN
     Indication: VESSEL PUNCTURE SITE PAIN
     Dosage: 650 MG, TID
     Route: 048
     Dates: start: 20170223, end: 20170227
  18. CURAN [Concomitant]
     Active Substance: RANITIDINE HYDROCHLORIDE
     Indication: CARDIOVASCULAR EVENT PROPHYLAXIS
     Dosage: 50 MG, QD
     Route: 042
     Dates: start: 20170224, end: 20170227
  19. LASIX [Concomitant]
     Active Substance: FUROSEMIDE
     Indication: PROPHYLAXIS
     Dosage: 20 MG, ONCE
     Route: 042
     Dates: start: 20170224, end: 20170224
  20. AMARYL [Concomitant]
     Active Substance: GLIMEPIRIDE
     Indication: DIABETES MELLITUS
     Dosage: 4 MG, BID
     Route: 048
     Dates: start: 1997, end: 20170304
  21. FLUOROURACIL. [Concomitant]
     Active Substance: FLUOROURACIL
     Dosage: 1510 MG, QD
     Route: 042
     Dates: start: 20170331, end: 20170404
  22. MACPERAN [Concomitant]
     Active Substance: METOCLOPRAMIDE HYDROCHLORIDE
     Dosage: 10 MG, TID
     Route: 042
     Dates: start: 20170411, end: 20170414
  23. CENTRUM SILVER [Concomitant]
     Active Substance: MINERALS\VITAMINS
     Indication: MINERAL SUPPLEMENTATION
     Dosage: 1 TABLET, QD
     Route: 048
     Dates: start: 20170224, end: 20170328
  24. NEXIUM [Concomitant]
     Active Substance: ESOMEPRAZOLE MAGNESIUM
     Indication: CARDIOVASCULAR EVENT PROPHYLAXIS
     Dosage: 40 MG, QD
     Route: 048
     Dates: start: 20170228, end: 20170328
  25. BASEN [Concomitant]
     Active Substance: VOGLIBOSE
     Indication: DIABETES MELLITUS
     Dosage: 0.3 MG, BID
     Route: 048
     Dates: start: 1997, end: 20170304
  26. EMEND (FOSAPREPITANT DIMEGLUMINE) [Suspect]
     Active Substance: FOSAPREPITANT DIMEGLUMINE
     Dosage: 150 MG, ONCE
     Route: 042
     Dates: start: 20170331, end: 20170331
  27. EMEND (FOSAPREPITANT DIMEGLUMINE) [Suspect]
     Active Substance: FOSAPREPITANT DIMEGLUMINE
     Dosage: 150 MG, ONCE
     Route: 042
     Dates: start: 20170426, end: 20170426
  28. HERCEPTIN [Concomitant]
     Active Substance: TRASTUZUMAB
     Dosage: 282 MG, ONCE
     Route: 042
     Dates: start: 20170426, end: 20170426
  29. CISPLATIN. [Concomitant]
     Active Substance: CISPLATIN
     Indication: GASTRIC CANCER
     Dosage: 93.6 MG, ONCE
     Route: 042
     Dates: start: 20170224, end: 20170224
  30. SANCUSO [Concomitant]
     Active Substance: GRANISETRON
     Dosage: 1 DF, QD
     Route: 062
     Dates: start: 20170330, end: 20170405
  31. SANCUSO [Concomitant]
     Active Substance: GRANISETRON
     Dosage: 1 DF, QD
     Route: 062
     Dates: start: 20170425, end: 20170501
  32. LASIX [Concomitant]
     Active Substance: FUROSEMIDE
     Dosage: 20 MG, ONCE
     Route: 042
     Dates: start: 20170331, end: 20170331
  33. LASIX [Concomitant]
     Active Substance: FUROSEMIDE
     Dosage: 20 MG, ONCE
     Route: 042
     Dates: start: 20170426, end: 20170426
  34. FAMOTIDINE. [Concomitant]
     Active Substance: FAMOTIDINE
     Indication: CARDIOVASCULAR EVENT PROPHYLAXIS
     Dosage: 20 MG, BID
     Route: 042
     Dates: start: 20170328, end: 20170401
  35. EMEND (FOSAPREPITANT DIMEGLUMINE) [Suspect]
     Active Substance: FOSAPREPITANT DIMEGLUMINE
     Indication: PROPHYLAXIS OF NAUSEA AND VOMITING
     Dosage: 150 MG, ONCE
     Route: 042
     Dates: start: 20170224, end: 20170224
  36. FLUOROURACIL. [Concomitant]
     Active Substance: FLUOROURACIL
     Dosage: 1470 MG, QD
     Route: 042
     Dates: start: 20170426, end: 20170430
  37. DEXAMETHASONE SODIUM PHOSPHATE. [Concomitant]
     Active Substance: DEXAMETHASONE SODIUM PHOSPHATE
     Dosage: 12 MG, QD
     Route: 042
     Dates: start: 20170426, end: 20170426
  38. NEXIUM I.V. [Concomitant]
     Active Substance: ESOMEPRAZOLE SODIUM
     Indication: CARDIOVASCULAR EVENT PROPHYLAXIS
     Dosage: 40 MG, QD
     Route: 042
     Dates: start: 20170217, end: 20170225
  39. CENTRUM SILVER [Concomitant]
     Active Substance: MINERALS\VITAMINS
     Indication: VITAMIN SUPPLEMENTATION
  40. DIABEX [Concomitant]
     Active Substance: METFORMIN HYDROCHLORIDE
     Indication: DIABETES MELLITUS
     Dosage: 1000 MG, BID
     Route: 048
     Dates: start: 1997, end: 20170304
  41. HERCEPTIN [Concomitant]
     Active Substance: TRASTUZUMAB
     Indication: GASTRIC CANCER
     Dosage: 428 MG, ONCE
     Route: 042
     Dates: start: 20170224, end: 20170224
  42. FLUOROURACIL. [Concomitant]
     Active Substance: FLUOROURACIL
     Indication: GASTRIC CANCER
     Dosage: 1560 MG, QD
     Route: 042
     Dates: start: 20170224
  43. DEXAMETHASONE SODIUM PHOSPHATE. [Concomitant]
     Active Substance: DEXAMETHASONE SODIUM PHOSPHATE
     Dosage: 10 MG, QD
     Route: 048
     Dates: start: 20170225, end: 20170227
  44. DEXAMETHASONE SODIUM PHOSPHATE. [Concomitant]
     Active Substance: DEXAMETHASONE SODIUM PHOSPHATE
     Dosage: 12 MG, QD
     Route: 042
     Dates: start: 20170331, end: 20170331
  45. DEXAMETHASONE SODIUM PHOSPHATE. [Concomitant]
     Active Substance: DEXAMETHASONE SODIUM PHOSPHATE
     Dosage: 10 MG, QD
     Route: 042
     Dates: start: 20170427, end: 20170430
  46. MACPERAN [Concomitant]
     Active Substance: METOCLOPRAMIDE HYDROCHLORIDE
     Dosage: 10 MG, TID
     Route: 042
     Dates: start: 20170425, end: 20170503
  47. CHLORPHENIRAMINE MALEATE. [Concomitant]
     Active Substance: CHLORPHENIRAMINE MALEATE
     Dosage: 4 MG, ONCE
     Route: 042
     Dates: start: 20170426, end: 20170426
  48. CURAN [Concomitant]
     Active Substance: RANITIDINE HYDROCHLORIDE
     Dosage: 50 MG, QD
     Route: 042
     Dates: start: 20170426, end: 20170430
  49. DEXTROSE. [Concomitant]
     Active Substance: DEXTROSE
     Indication: HYPOGLYCAEMIA
     Dosage: 50 ML, ONCE
     Route: 042
     Dates: start: 20170305, end: 20170305

REACTIONS (4)
  - Food craving [Recovered/Resolved]
  - Hyponatraemia [Recovered/Resolved]
  - Dyspepsia [Recovered/Resolved]
  - Hypoglycaemia [Recovered/Resolved]

NARRATIVE: CASE EVENT DATE: 20170228
